FAERS Safety Report 9937411 (Version 2)
Quarter: 2014Q1

REPORT INFORMATION
  Report Type: Spontaneous
  Country: IT (occurrence: IT)
  Receive Date: 20140303
  Receipt Date: 20140306
  Transmission Date: 20141002
  Serious: Yes (Other)
  Sender: FDA-Public Use
  Company Number: IT-ROCHE-1358244

PATIENT
  Age: 43 Year
  Sex: Female

DRUGS (1)
  1. ROCEFIN [Suspect]
     Indication: PRODUCT USED FOR UNKNOWN INDICATION
     Route: 030
     Dates: start: 20131227, end: 20131227

REACTIONS (2)
  - Dyspnoea [Recovering/Resolving]
  - Face oedema [Recovering/Resolving]
